FAERS Safety Report 7505786-5 (Version None)
Quarter: 2011Q2

REPORT INFORMATION
  Report Type: 
  Country: None (occurrence: None)
  Receive Date: 20110526
  Receipt Date: 20110502
  Transmission Date: 20111010
  Serious: Yes (Hospitalization)
  Sender: FDA-Public Use
  Company Number: US-BAYER-201031234NA

PATIENT
  Age: 41 Year
  Sex: Female
  Weight: 88.435 kg

DRUGS (5)
  1. LIPITOR [Concomitant]
     Indication: BLOOD CHOLESTEROL INCREASED
     Dosage: 20 MG, CONT
     Dates: start: 20040101
  2. DICLOFENAC SODIUM [Concomitant]
     Dosage: 75 MG, BID
  3. ZETIA [Concomitant]
  4. YASMIN [Suspect]
     Indication: ENDOMETRIOSIS
     Route: 048
  5. VICODIN [Concomitant]

REACTIONS (4)
  - SWELLING [None]
  - PAIN [None]
  - PULMONARY EMBOLISM [None]
  - DEEP VEIN THROMBOSIS [None]
